FAERS Safety Report 8270805-8 (Version None)
Quarter: 2012Q2

REPORT INFORMATION
  Report Type: 
  Country: None (occurrence: None)
  Receive Date: 20120410
  Receipt Date: 20120405
  Transmission Date: 20120825
  Serious: Yes (Life-Threatening, Hospitalization)
  Sender: FDA-Public Use
  Company Number: FR-ROCHE-1054770

PATIENT
  Sex: Male

DRUGS (3)
  1. PREDNISONE TAB [Suspect]
     Indication: TRANSPLANT REJECTION
     Dates: start: 20120127
  2. MYCOPHENOLATE MOFETIL (CELLCEPT) [Suspect]
     Indication: TRANSPLANT REJECTION
     Route: 048
     Dates: start: 20120126
  3. EVEROLIMUS [Suspect]
     Indication: TRANSPLANT REJECTION
     Dates: start: 20120131, end: 20120328

REACTIONS (7)
  - PLEURAL EFFUSION [None]
  - LEFT VENTRICULAR FAILURE [None]
  - HAEMOTHORAX [None]
  - PULMONARY EMBOLISM [None]
  - PULMONARY SEPSIS [None]
  - RESPIRATORY DISTRESS [None]
  - PULMONARY OEDEMA [None]
